FAERS Safety Report 4616413-9 (Version None)
Quarter: 2005Q1

REPORT INFORMATION
  Report Type: 
  Country: None (occurrence: None)
  Receive Date: 20050321
  Receipt Date: 20050310
  Transmission Date: 20050727
  Serious: Yes (Other)
  Sender: FDA-Public Use
  Company Number: 2005043617

PATIENT
  Age: 62 Year
  Sex: Male

DRUGS (14)
  1. NEURONTIN [Suspect]
     Indication: NEURALGIA
     Dosage: 500 MG (3 IN 1 D), ORAL
     Route: 048
     Dates: end: 20050110
  2. GABAPENTIN [Suspect]
     Indication: NEURALGIA
     Dosage: 500 MG (3 IN 1 D), ORAL
     Route: 048
     Dates: start: 20050110
  3. FEXOFENADINE HYDROCHLORIDE [Concomitant]
  4. DICLOFENAC SODIUM [Concomitant]
  5. CETIRIZINE HCL [Concomitant]
  6. BENZONATATE (BENZONATATE) [Concomitant]
  7. DONEPEZIL HCL [Concomitant]
  8. PROPRANOLOL HYDROCHLORIDE [Concomitant]
  9. TIAGABINE HYDROCHLORIDE (TIAGABINE HYDROCHLORIDE) [Concomitant]
  10. RISPERDAL [Concomitant]
  11. VALSARTAN [Concomitant]
  12. ROSIGLITAZONE MALEATE [Concomitant]
  13. NORTRIPTYLINE HCL [Concomitant]
  14. INSULIN [Concomitant]

REACTIONS (4)
  - EYE DISORDER [None]
  - EYE SWELLING [None]
  - VASCULAR RUPTURE [None]
  - VISUAL ACUITY REDUCED [None]
